FAERS Safety Report 16563830 (Version 1)
Quarter: 2019Q3

REPORT INFORMATION
  Report Type: Spontaneous
  Country: DE (occurrence: DE)
  Receive Date: 20190712
  Receipt Date: 20190712
  Transmission Date: 20191004
  Serious: Yes (Other)
  Sender: FDA-Public Use
  Company Number: DE-ROCHE-2353222

PATIENT
  Age: 11 Year
  Sex: Female

DRUGS (1)
  1. RITUXIMAB. [Suspect]
     Active Substance: RITUXIMAB
     Indication: HAEMOLYTIC URAEMIC SYNDROME
     Route: 065

REACTIONS (5)
  - Platelet count decreased [Unknown]
  - Serum sickness [Unknown]
  - Abdominal pain [Unknown]
  - Off label use [Unknown]
  - Intentional product use issue [Unknown]
